FAERS Safety Report 9434465 (Version 1)
Quarter: 2013Q3

REPORT INFORMATION
  Report Type: Spontaneous
  Country: US (occurrence: US)
  Receive Date: 20130801
  Receipt Date: 20130801
  Transmission Date: 20140515
  Serious: No
  Sender: FDA-Public Use
  Company Number: US-TEVA-422576USA

PATIENT
  Sex: Female
  Weight: 52.21 kg

DRUGS (4)
  1. NUVIGIL [Suspect]
     Dates: start: 201006
  2. TRAMADOL HYDROCHLORIDE [Concomitant]
     Indication: PAIN
  3. PROGESTERONE [Concomitant]
     Indication: MENOPAUSE
  4. ESTROGEN NOS [Concomitant]
     Indication: MENOPAUSE

REACTIONS (3)
  - Headache [Unknown]
  - Vision blurred [Unknown]
  - Feeling abnormal [Unknown]
